FAERS Safety Report 9275411 (Version 3)
Quarter: 2013Q2

REPORT INFORMATION
  Report Type: Spontaneous
  Country: IT (occurrence: None)
  Receive Date: 20130430
  Receipt Date: 20130509
  Transmission Date: 20140414
  Serious: Yes (Hospitalization)
  Sender: FDA-Public Use
  Company Number: 2013AP004700

PATIENT
  Age: 16 Year
  Sex: Male

DRUGS (6)
  1. RAMIPRIL (RAMIPRIL) [Suspect]
     Route: 048
  2. ZITROMAX [Suspect]
     Indication: INTENTIONAL SELF-INJURY
     Route: 048
  3. LEVOCETIRIZINE DIHYDROCHLORIDE [Suspect]
     Indication: INTENTIONAL SELF-INJURY
     Route: 048
  4. PARACETAMOL (PARACETAMOL) [Suspect]
     Indication: INTENTIONAL SELF-INJURY
     Route: 048
  5. ALMOTRIPTAN (ALMOTRIPTAN) [Suspect]
     Indication: INTENTIONAL SELF-INJURY
     Route: 048
  6. SENNOSIDES A AND B [Suspect]
     Indication: INTENTIONAL SELF-INJURY
     Route: 048

REACTIONS (3)
  - Confusional state [None]
  - Somnolence [None]
  - Somnolence [None]
